FAERS Safety Report 23265486 (Version 1)
Quarter: 2023Q4

REPORT INFORMATION
  Report Type: Spontaneous
  Country: US (occurrence: US)
  Receive Date: 20231206
  Receipt Date: 20231206
  Transmission Date: 20240109
  Serious: No
  Sender: FDA-Public Use
  Company Number: US-STERISCIENCE B.V.-2022-ST-000559

PATIENT
  Age: 29 Year
  Sex: Female

DRUGS (13)
  1. BUPIVACAINE [Suspect]
     Active Substance: BUPIVACAINE
     Indication: Radicular pain
     Dosage: 6.5 MILLIGRAM
     Route: 037
  2. OLANZAPINE [Suspect]
     Active Substance: OLANZAPINE
     Indication: Hallucination
     Dosage: UNK
  3. HYDROMORPHONE [Concomitant]
     Active Substance: HYDROMORPHONE
     Indication: Pain
     Dosage: 2.5 MILLIGRAM BOLUS EVERY 10 MINUTES PRN
     Route: 042
  4. HYDROMORPHONE [Concomitant]
     Active Substance: HYDROMORPHONE
     Dosage: 9.8 MILLIGRAM, QD
     Route: 037
  5. KETAMINE [Concomitant]
     Active Substance: KETAMINE
     Indication: Pain
     Dosage: UNK
     Route: 065
  6. FENTANYL [Concomitant]
     Active Substance: FENTANYL\FENTANYL CITRATE
     Indication: Pain
     Dosage: UNK
     Route: 065
  7. LIDOCAINE [Concomitant]
     Active Substance: LIDOCAINE
     Indication: Radicular pain
     Dosage: 2 MILLIGRAM/KILOGRAM
     Route: 042
  8. LIDOCAINE [Concomitant]
     Active Substance: LIDOCAINE
     Dosage: 1 MILLIGRAM/KILOGRAM, QH
     Route: 042
  9. LIDOCAINE [Concomitant]
     Active Substance: LIDOCAINE
     Dosage: 1.6 MILLIGRAM/KILOGRAM, QH
     Route: 042
  10. LIDOCAINE [Concomitant]
     Active Substance: LIDOCAINE
     Dosage: 1 MILLIGRAM/KILOGRAM, QH
     Route: 042
  11. DEXAMETHASONE [Concomitant]
     Active Substance: DEXAMETHASONE
     Indication: Hypoaesthesia
     Dosage: 10 MILLIGRAM, QD
     Route: 042
  12. DEXAMETHASONE [Concomitant]
     Active Substance: DEXAMETHASONE
     Indication: Muscular weakness
     Dosage: 10 MILLIGRAM, TID
     Route: 042
  13. DEXAMETHASONE [Concomitant]
     Active Substance: DEXAMETHASONE
     Dosage: REDUCED TO ONCE DAILY
     Route: 042

REACTIONS (1)
  - Drug ineffective for unapproved indication [Unknown]
